FAERS Safety Report 4667588-7 (Version None)
Quarter: 2005Q2

REPORT INFORMATION
  Report Type: 
  Country: None (occurrence: None)
  Receive Date: 20050502
  Receipt Date: 20040507
  Transmission Date: 20051028
  Serious: Yes (Hospitalization)
  Sender: FDA-Public Use
  Company Number: 1604

PATIENT
  Age: 54 Year
  Sex: Male
  Weight: 84.369 kg

DRUGS (6)
  1. ONTAK [Suspect]
     Indication: MYCOSIS FUNGOIDES
     Dosage: 18 UG/LG/D QD IV
     Route: 042
     Dates: start: 20040419, end: 20040423
  2. ONTAK [Suspect]
     Indication: MYCOSIS FUNGOIDES
     Dosage: 18 UG/KG/D/ QD IV
     Route: 042
     Dates: start: 20040519, end: 20040523
  3. ONTAK [Suspect]
     Indication: MYCOSIS FUNGOIDES
     Dosage: 18 UG/KG/D/ D IV
     Route: 042
     Dates: start: 20040607, end: 20040611
  4. BEXAROTENE [Concomitant]
  5. FISH OIL CAPSULES [Concomitant]
  6. LEVOTHYROXINE [Concomitant]

REACTIONS (8)
  - ANOREXIA [None]
  - ATRIAL FIBRILLATION [None]
  - DEHYDRATION [None]
  - HEADACHE [None]
  - LIVER FUNCTION TEST ABNORMAL [None]
  - NAUSEA [None]
  - PYREXIA [None]
  - VOMITING [None]
